FAERS Safety Report 11484526 (Version 1)
Quarter: 2015Q3

REPORT INFORMATION
  Report Type: Spontaneous
  Country: US (occurrence: US)
  Receive Date: 20150903
  Receipt Date: 20150903
  Transmission Date: 20151125
  Serious: No
  Sender: FDA-Public Use
  Company Number: US-ELI_LILLY_AND_COMPANY-US201208003820

PATIENT
  Sex: Female

DRUGS (7)
  1. VITAMIN B COMPLEX [Concomitant]
     Active Substance: CYANOCOBALAMIN\DEXPANTHENOL\NIACINAMIDE\PYRIDOXINE HYDROCHLORIDE\RIBOFLAVIN 5^-PHOSPHATE SODIUM\THIAMINE HYDROCHLORIDE\VITAMIN B COMPLEX
  2. CYMBALTA [Suspect]
     Active Substance: DULOXETINE HYDROCHLORIDE
     Indication: ANXIETY
     Dosage: 30 MG, BID
     Dates: start: 20120804, end: 20120811
  3. VALTREX [Concomitant]
     Active Substance: VALACYCLOVIR HYDROCHLORIDE
  4. ESTROGEN [Concomitant]
     Active Substance: ESTRONE\SUS SCROFA OVARY
  5. VITAMIN D3 [Concomitant]
     Active Substance: CHOLECALCIFEROL
  6. SIMVASTATIN. [Concomitant]
     Active Substance: SIMVASTATIN
  7. ATIVAN [Concomitant]
     Active Substance: LORAZEPAM

REACTIONS (9)
  - Speech disorder [Unknown]
  - Influenza [Unknown]
  - Dizziness [Unknown]
  - Tremor [Unknown]
  - Asthenia [Unknown]
  - Feeling abnormal [Unknown]
  - Dyskinesia [Unknown]
  - Palpitations [Unknown]
  - Muscle spasms [Unknown]

NARRATIVE: CASE EVENT DATE: 201208
